FAERS Safety Report 19194664 (Version 1)
Quarter: 2021Q2

REPORT INFORMATION
  Report Type: Spontaneous
  Country: CN (occurrence: CN)
  Receive Date: 20210429
  Receipt Date: 20210429
  Transmission Date: 20210717
  Serious: Yes (Disabling)
  Sender: FDA-Public Use
  Company Number: CN-SA-2021SA137171

PATIENT
  Age: 81 Year
  Sex: Male
  Weight: 63 kg

DRUGS (11)
  1. AMLODIPINE BESILATE [Suspect]
     Active Substance: AMLODIPINE BESYLATE
     Indication: HYPERTENSION
     Dosage: 5 MG, QD (THERAPY DURATION:1 MONTH 7 DAYS)
     Route: 048
     Dates: start: 20210219, end: 20210325
  2. AMLODIPINE BESILATE [Suspect]
     Active Substance: AMLODIPINE BESYLATE
     Indication: BLOOD GLUCOSE ABNORMAL
  3. AMLODIPINE BESILATE [Suspect]
     Active Substance: AMLODIPINE BESYLATE
     Indication: ASTHMA
  4. LANSOPRAZOLE. [Suspect]
     Active Substance: LANSOPRAZOLE
     Indication: GASTRIC ULCER
     Dosage: 30 MG, ONCE DAILY (POWDER)
     Route: 041
     Dates: start: 20210219, end: 20210308
  5. AMLODIPINE BENZENESULFONATE [Suspect]
     Active Substance: AMLODIPINE BESYLATE
     Indication: ASTHMA
  6. AMLODIPINE BENZENESULFONATE [Suspect]
     Active Substance: AMLODIPINE BESYLATE
     Indication: BLOOD GLUCOSE ABNORMAL
  7. HARNAL [Suspect]
     Active Substance: TAMSULOSIN HYDROCHLORIDE
     Indication: URINARY RETENTION
     Dosage: 0.2 MG, ONCE DAILY
     Route: 048
     Dates: start: 20210302, end: 20210325
  8. MOXIFLOXACIN HYDROCHLORIDE. [Suspect]
     Active Substance: MOXIFLOXACIN HYDROCHLORIDE
     Indication: RESPIRATORY TRACT INFECTION
     Dosage: 0.4 G, QD
     Route: 048
     Dates: start: 20210226, end: 20210307
  9. SULPERAZON [Suspect]
     Active Substance: CEFOPERAZONE SODIUM\SULBACTAM SODIUM
     Indication: RESPIRATORY TRACT INFECTION
     Dosage: 2 G, TID
     Route: 041
     Dates: start: 20210225, end: 20210307
  10. HYDROCHLOROTHIAZIDE/VALSARTAN [Suspect]
     Active Substance: HYDROCHLOROTHIAZIDE\VALSARTAN
     Indication: HYPERTENSION
     Dosage: 1 DF, QD
     Route: 048
     Dates: start: 20210301, end: 20210310
  11. AMLODIPINE BENZENESULFONATE [Suspect]
     Active Substance: AMLODIPINE BESYLATE
     Indication: HYPERTENSION
     Dosage: 5 MG, QM
     Route: 048

REACTIONS (2)
  - Liver function test abnormal [Recovering/Resolving]
  - Condition aggravated [Recovering/Resolving]

NARRATIVE: CASE EVENT DATE: 20210308
